FAERS Safety Report 8928675 (Version 1)
Quarter: 2012Q4

REPORT INFORMATION
  Report Type: Spontaneous
  Country: US (occurrence: None)
  Receive Date: 20121126
  Receipt Date: 20121126
  Transmission Date: 20130627
  Serious: Yes (Other)
  Sender: FDA-Public Use
  Company Number: None

PATIENT
  Age: 59 Year
  Sex: Female
  Weight: 63.5 kg

DRUGS (1)
  1. MULTIHANCE [Suspect]
     Indication: MRI
     Dosage: 10 ml   1   IV bolus
     Route: 040
     Dates: start: 20121026, end: 20121026

REACTIONS (5)
  - Chest pain [None]
  - Headache [None]
  - Blood pressure increased [None]
  - Neck pain [None]
  - Product quality issue [None]
